FAERS Safety Report 6848902-0 (Version None)
Quarter: 2010Q3

REPORT INFORMATION
  Report Type: 
  Country: None (occurrence: None)
  Receive Date: 20100716
  Receipt Date: 20071006
  Transmission Date: 20110219
  Serious: Yes (Other)
  Sender: FDA-Public Use
  Company Number: US-PFIZER INC-2007076053

PATIENT
  Sex: Female
  Weight: 72.727 kg

DRUGS (6)
  1. CHANTIX [Suspect]
     Indication: SMOKING CESSATION THERAPY
     Dates: start: 20070101
  2. ALL OTHER THERAPEUTIC PRODUCTS [Suspect]
     Indication: HORMONE REPLACEMENT THERAPY
     Dosage: DAILY EVERY DAY
     Route: 067
     Dates: start: 20070901
  3. MULTI-VITAMINS [Concomitant]
  4. RISPERDAL [Concomitant]
     Dosage: 1MG
  5. ASTELIN [Concomitant]
  6. NASONEX [Concomitant]

REACTIONS (10)
  - ABDOMINAL PAIN UPPER [None]
  - BLOOD OESTROGEN DECREASED [None]
  - COUGH [None]
  - DEPRESSION [None]
  - FEELING ABNORMAL [None]
  - NASOPHARYNGITIS [None]
  - NAUSEA [None]
  - PROGESTERONE DECREASED [None]
  - RESPIRATORY TRACT CONGESTION [None]
  - VOMITING [None]
